FAERS Safety Report 13047185 (Version 2)
Quarter: 2017Q1

REPORT INFORMATION
  Report Type: Spontaneous
  Country: US (occurrence: US)
  Receive Date: 20161220
  Receipt Date: 20170117
  Transmission Date: 20170428
  Serious: Yes (Hospitalization, Other)
  Sender: FDA-Public Use
  Company Number: US-009507513-1612USA009250

PATIENT
  Age: 56 Year

DRUGS (3)
  1. VELCADE [Suspect]
     Active Substance: BORTEZOMIB
     Indication: PLASMA CELL MYELOMA
     Dosage: 1.3 MG/M2, 2 X WKLY X 2 WEEKS AND 1 WEEK OFF
     Route: 042
     Dates: start: 20140317, end: 20140529
  2. CYTOXAN [Suspect]
     Active Substance: CYCLOPHOSPHAMIDE
     Indication: PLASMA CELL MYELOMA
     Dosage: 500 MG, WEEKLY
     Route: 048
     Dates: start: 20140321, end: 20140429
  3. DEXAMETHASONE. [Suspect]
     Active Substance: DEXAMETHASONE
     Indication: PLASMA CELL MYELOMA
     Dosage: 40 MG, WKLY
     Route: 048
     Dates: start: 20140317, end: 20140529

REACTIONS (3)
  - Thoracic vertebral fracture [Recovered/Resolved]
  - Pathological fracture [Recovered/Resolved]
  - Cancer pain [Recovered/Resolved]

NARRATIVE: CASE EVENT DATE: 20140609
